FAERS Safety Report 9442596 (Version 4)
Quarter: 2013Q3

REPORT INFORMATION
  Report Type: Spontaneous
  Country: DE (occurrence: JP)
  Receive Date: 20130806
  Receipt Date: 20130909
  Transmission Date: 20140515
  Serious: Yes (Hospitalization)
  Sender: FDA-Public Use
  Company Number: JP-FRI-1000047452

PATIENT
  Age: 80 Year
  Sex: Male

DRUGS (13)
  1. MEMANTINE [Suspect]
     Indication: DEMENTIA ALZHEIMER^S TYPE
     Dosage: 5 MG
     Route: 048
     Dates: start: 20130621, end: 20130627
  2. MEMANTINE [Suspect]
     Dosage: 10 MG
     Route: 048
     Dates: start: 20130628, end: 20130704
  3. MEMANTINE [Suspect]
     Dosage: 15 MG
     Route: 048
     Dates: start: 20130705, end: 20130711
  4. MEMANTINE [Suspect]
     Dosage: 20 MG
     Route: 048
     Dates: start: 20130712, end: 20130717
  5. MEMANTINE [Suspect]
     Indication: DEMENTIA ALZHEIMER^S TYPE
     Dosage: 10 MG
     Route: 048
     Dates: start: 20130718, end: 20130725
  6. GRAMALIL [Suspect]
     Indication: DEMENTIA ALZHEIMER^S TYPE
     Dosage: 50 MG
     Dates: start: 20130718, end: 20130722
  7. YOKUKANSAN [Concomitant]
     Indication: DEMENTIA ALZHEIMER^S TYPE
     Dosage: 7.5 GRAM
     Route: 048
     Dates: start: 20130621
  8. ARICEPT D [Concomitant]
     Indication: DEMENTIA ALZHEIMER^S TYPE
     Dosage: 10 MG
     Route: 048
     Dates: start: 2011
  9. NIZATORIC [Concomitant]
     Indication: GASTRITIS PROPHYLAXIS
     Dosage: 150 MG
     Route: 048
  10. FOSRENOL [Concomitant]
     Indication: RENAL FAILURE CHRONIC
     Dosage: 1500 MG
     Route: 048
  11. ONEALFA [Concomitant]
     Indication: OSTEOPOROSIS
     Dosage: 0.5 MCG
     Route: 048
  12. ALLEGRA [Concomitant]
     Dosage: 120 MG
     Route: 048
  13. MIRCERA [Concomitant]
     Indication: NEPHROGENIC ANAEMIA
     Dosage: 50 MCG MONTHLY
     Route: 042

REACTIONS (3)
  - Depressed level of consciousness [Recovered/Resolved]
  - Neuroleptic malignant syndrome [Recovered/Resolved]
  - Somnolence [Recovered/Resolved]
